FAERS Safety Report 6104914-6 (Version None)
Quarter: 2009Q1

REPORT INFORMATION
  Report Type: 
  Country: None (occurrence: None)
  Receive Date: 20090304
  Receipt Date: 20090304
  Transmission Date: 20090719
  Serious: No
  Sender: FDA-Public Use
  Company Number: None

PATIENT

DRUGS (2)
  1. OXYCODONE AND ACETAMINOPHEN [Suspect]
     Indication: ABDOMINAL PAIN
     Dosage: 2 Q4 PO 1 YR AGO
     Route: 048
  2. OXYCODONE AND ACETAMINOPHEN [Suspect]
     Indication: OSTEOARTHRITIS
     Dosage: 2 Q4 PO 1 YR AGO
     Route: 048

REACTIONS (1)
  - NAUSEA [None]
